FAERS Safety Report 24897216 (Version 1)
Quarter: 2025Q1

REPORT INFORMATION
  Report Type: Report from Study
  Country: CA (occurrence: CA)
  Receive Date: 20250129
  Receipt Date: 20250129
  Transmission Date: 20250409
  Serious: Yes (Other)
  Sender: ABBVIE
  Company Number: CA-ABBVIE-6097377

PATIENT
  Age: 51 Year
  Sex: Female

DRUGS (1)
  1. SKYRIZI [Suspect]
     Active Substance: RISANKIZUMAB-RZAA
     Indication: Crohn^s disease
     Route: 058
     Dates: start: 20240617

REACTIONS (10)
  - Injection site extravasation [Unknown]
  - Nausea [Recovered/Resolved]
  - Spinal pain [Unknown]
  - Neck pain [Unknown]
  - Abdominal pain [Unknown]
  - Anorectal discomfort [Unknown]
  - Pain in extremity [Unknown]
  - Proctalgia [Unknown]
  - Diarrhoea [Unknown]
  - Drug ineffective [Unknown]

NARRATIVE: CASE EVENT DATE: 20241201
